FAERS Safety Report 15439117 (Version 2)
Quarter: 2018Q4

REPORT INFORMATION
  Report Type: Spontaneous
  Country: US (occurrence: US)
  Receive Date: 20180928
  Receipt Date: 20181130
  Transmission Date: 20190204
  Serious: No
  Sender: FDA-Public Use
  Company Number: US-PFIZER INC-2018387173

PATIENT
  Age: 56 Year
  Sex: Female
  Weight: 51.26 kg

DRUGS (1)
  1. MORPHINE SULFATE. [Suspect]
     Active Substance: MORPHINE SULFATE
     Dosage: 15 MG, 2X/DAY
     Route: 048
     Dates: start: 20161216, end: 20180822

REACTIONS (1)
  - Musculoskeletal discomfort [Unknown]
